FAERS Safety Report 5133691-0 (Version None)
Quarter: 2006Q4

REPORT INFORMATION
  Report Type: 
  Country: None (occurrence: None)
  Receive Date: 20061024
  Receipt Date: 20060712
  Transmission Date: 20070319
  Serious: No
  Sender: FDA-Public Use
  Company Number: US-AMGEN-KDL185989

PATIENT
  Age: 61 Year
  Sex: Female

DRUGS (12)
  1. SENSIPAR [Suspect]
     Indication: HYPERPARATHYROIDISM SECONDARY
     Route: 050
     Dates: start: 20060101
  2. EPOGEN [Concomitant]
     Indication: RENAL FAILURE CHRONIC
  3. ATIVAN [Concomitant]
  4. HYDROCODONE [Concomitant]
  5. FERROUS SULFATE TAB [Concomitant]
  6. VENOFER [Concomitant]
  7. FOSRENOL [Concomitant]
  8. NORVASC [Concomitant]
  9. TPN [Concomitant]
  10. LANTUS [Concomitant]
  11. NOVOLIN R [Concomitant]
  12. LOVENOX [Concomitant]

REACTIONS (1)
  - HYPERCALCAEMIA [None]
